FAERS Safety Report 4416755-6 (Version None)
Quarter: 2004Q3

REPORT INFORMATION
  Report Type: 
  Country: None (occurrence: None)
  Receive Date: 20040802
  Receipt Date: 20040705
  Transmission Date: 20050211
  Serious: Yes (Other)
  Sender: FDA-Public Use
  Company Number: 2004-DE-03999GL

PATIENT
  Age: 52 Year
  Sex: Female

DRUGS (3)
  1. TELMISARTAN +  HYDROCHLOROTHIAZIDE (MICARDIS HCT) (UNK) (HYDROCHLOROTH [Suspect]
     Dosage: PO
     Route: 048
     Dates: start: 20040515, end: 20040616
  2. FELODIPINE [Concomitant]
  3. NEBIVOLOL HCL [Concomitant]

REACTIONS (1)
  - THROMBOCYTOPENIC PURPURA [None]
